FAERS Safety Report 14581912 (Version 2)
Quarter: 2018Q2

REPORT INFORMATION
  Report Type: Other
  Country: BG (occurrence: BG)
  Receive Date: 20180228
  Receipt Date: 20180422
  Transmission Date: 20180711
  Serious: Yes (Hospitalization)
  Sender: FDA-Public Use
  Company Number: BG-APOPHARMA-2010AP002440

PATIENT
  Age: 26 Year
  Sex: Female

DRUGS (1)
  1. FERRIPROX [Suspect]
     Active Substance: DEFERIPRONE
     Indication: HAEMOSIDEROSIS
     Dosage: 75 MG/KG, QD
     Route: 048
     Dates: start: 2008, end: 20100901

REACTIONS (5)
  - Tachycardia [Recovered/Resolved]
  - Hypotension [Recovered/Resolved]
  - Upper respiratory tract infection [Recovered/Resolved]
  - Febrile neutropenia [Recovered/Resolved]
  - Asthenia [Recovered/Resolved]

NARRATIVE: CASE EVENT DATE: 20100901
